FAERS Safety Report 23134456 (Version 1)
Quarter: 2023Q4

REPORT INFORMATION
  Report Type: Spontaneous
  Country: US (occurrence: None)
  Receive Date: 20231031
  Receipt Date: 20231031
  Transmission Date: 20240110
  Serious: Yes (Other)
  Sender: FDA-Public Use
  Company Number: None

PATIENT
  Age: 45 Year
  Sex: Male
  Weight: 97.65 kg

DRUGS (1)
  1. ALL DAY ALLERGY RELIEF (CETIRIZINE HYDROCHLORIDE) [Suspect]
     Active Substance: CETIRIZINE HYDROCHLORIDE
     Dosage: OTHER QUANTITY : 5 DROP(S);?OTHER FREQUENCY : AS NEEDED;?
     Dates: start: 20230907, end: 20231031

REACTIONS (3)
  - Vision blurred [None]
  - Eye irritation [None]
  - Instillation site irritation [None]

NARRATIVE: CASE EVENT DATE: 20231030
